FAERS Safety Report 22332776 (Version 1)
Quarter: 2023Q2

REPORT INFORMATION
  Report Type: Spontaneous
  Country: US (occurrence: US)
  Receive Date: 20230517
  Receipt Date: 20230517
  Transmission Date: 20230722
  Serious: No
  Sender: FDA-Public Use
  Company Number: US-PFIZER INC-PV202300085654

PATIENT
  Age: 58 Year
  Sex: Female
  Weight: 60.33 kg

DRUGS (1)
  1. HYDROCORTISONE [Suspect]
     Active Substance: HYDROCORTISONE
     Indication: Addison^s disease
     Dosage: UNK

REACTIONS (4)
  - Malaise [Unknown]
  - Lethargy [Unknown]
  - Fatigue [Unknown]
  - Affective disorder [Unknown]
